FAERS Safety Report 23195752 (Version 3)
Quarter: 2024Q1

REPORT INFORMATION
  Report Type: Spontaneous
  Country: JP (occurrence: JP)
  Receive Date: 20231117
  Receipt Date: 20240216
  Transmission Date: 20240410
  Serious: Yes (Hospitalization, Other)
  Sender: FDA-Public Use
  Company Number: JP-GLAXOSMITHKLINE-JP2023JPN157208

PATIENT

DRUGS (1)
  1. VALTREX [Suspect]
     Active Substance: VALACYCLOVIR HYDROCHLORIDE
     Indication: Herpes zoster
     Dosage: 500 MG

REACTIONS (7)
  - Toxic encephalopathy [Unknown]
  - Altered state of consciousness [Recovering/Resolving]
  - Movement disorder [Unknown]
  - Screaming [Unknown]
  - Psychiatric symptom [Unknown]
  - Malaise [Unknown]
  - Pyrexia [Unknown]
